FAERS Safety Report 8019084-7 (Version None)
Quarter: 2012Q1

REPORT INFORMATION
  Report Type: 
  Country: None (occurrence: None)
  Receive Date: 20120103
  Receipt Date: 20110903
  Transmission Date: 20120608
  Serious: No
  Sender: FDA-Public Use
  Company Number: US-ABBOTT-11P-163-0851574-00

PATIENT
  Sex: Female

DRUGS (1)
  1. TRICOR [Suspect]
     Indication: PRODUCT USED FOR UNKNOWN INDICATION

REACTIONS (3)
  - PRODUCT FORMULATION ISSUE [None]
  - PRODUCT TASTE ABNORMAL [None]
  - TABLET PHYSICAL ISSUE [None]
